FAERS Safety Report 19831869 (Version 2)
Quarter: 2021Q3

REPORT INFORMATION
  Report Type: Spontaneous
  Country: US (occurrence: US)
  Receive Date: 20210914
  Receipt Date: 20210916
  Transmission Date: 20211014
  Serious: No
  Sender: FDA-Public Use
  Company Number: US-VIVUS, INC.-2021V1000199

PATIENT
  Sex: Female

DRUGS (1)
  1. QSYMIA [Suspect]
     Active Substance: PHENTERMINE HYDROCHLORIDE\TOPIRAMATE
     Indication: PRODUCT USED FOR UNKNOWN INDICATION
     Dates: start: 202107

REACTIONS (9)
  - Dysuria [Unknown]
  - Renal pain [Unknown]
  - Illness [Unknown]
  - Nausea [Unknown]
  - Inappropriate schedule of product discontinuation [Unknown]
  - Vomiting [Unknown]
  - Abdominal pain upper [Unknown]
  - Thirst [Unknown]
  - Headache [Unknown]

NARRATIVE: CASE EVENT DATE: 202107
